FAERS Safety Report 12612379 (Version 4)
Quarter: 2017Q4

REPORT INFORMATION
  Report Type: Report from Study
  Country: None (occurrence: BR)
  Receive Date: 20160801
  Receipt Date: 20171116
  Transmission Date: 20180320
  Serious: Yes (Hospitalization, Other)
  Sender: FDA-Public Use
  Company Number: BR-ABBVIE-16K-020-1687147-00

PATIENT
  Sex: Male
  Weight: 81 kg

DRUGS (7)
  1. VELIJA [Concomitant]
     Active Substance: DULOXETINE HYDROCHLORIDE
     Indication: PRODUCT USED FOR UNKNOWN INDICATION
  2. HUMIRA [Suspect]
     Active Substance: ADALIMUMAB
     Route: 058
     Dates: start: 201502
  3. HUMIRA [Suspect]
     Active Substance: ADALIMUMAB
     Indication: PSORIATIC ARTHROPATHY
     Route: 058
     Dates: start: 20100112, end: 201411
  4. GLIFAGE XR [Concomitant]
     Active Substance: METFORMIN HYDROCHLORIDE
     Indication: DIABETES MELLITUS
     Route: 048
  5. RISPERIDONE. [Concomitant]
     Active Substance: RISPERIDONE
     Indication: PRODUCT USED FOR UNKNOWN INDICATION
  6. NEOVITE [Concomitant]
     Indication: LACRIMATION INCREASED
     Route: 048
     Dates: start: 201604
  7. AAS [Concomitant]
     Active Substance: ASPIRIN
     Indication: ANTICOAGULANT THERAPY
     Route: 048

REACTIONS (14)
  - Coronary vein stenosis [Unknown]
  - Malaise [Recovered/Resolved]
  - Abnormal behaviour [Unknown]
  - Generalised erythema [Recovered/Resolved]
  - Lacrimation increased [Recovering/Resolving]
  - Pruritus [Unknown]
  - Dyspnoea [Unknown]
  - Cerebral ischaemia [Recovering/Resolving]
  - Confusional state [Recovering/Resolving]
  - Wound [Unknown]
  - Gait inability [Recovering/Resolving]
  - Loss of personal independence in daily activities [Unknown]
  - Nervousness [Unknown]
  - Hypertension [Recovered/Resolved]

NARRATIVE: CASE EVENT DATE: 2012
